FAERS Safety Report 8502028-9 (Version None)
Quarter: 2012Q3

REPORT INFORMATION
  Report Type: 
  Country: None (occurrence: None)
  Receive Date: 20120711
  Receipt Date: 20120703
  Transmission Date: 20120928
  Serious: Yes (Death)
  Sender: FDA-Public Use
  Company Number: MX-SANOFI-AVENTIS-2012SA047508

PATIENT
  Age: 73 Year
  Sex: Female

DRUGS (5)
  1. AVANDIA [Concomitant]
     Indication: TYPE 2 DIABETES MELLITUS
     Route: 048
     Dates: start: 20040101, end: 20120409
  2. LOSARTAN POTASSIUM [Concomitant]
     Route: 048
     Dates: start: 19880101, end: 20120409
  3. LANTUS [Suspect]
     Indication: TYPE 2 DIABETES MELLITUS
     Route: 058
     Dates: start: 20040101, end: 20120401
  4. ASPIRIN [Concomitant]
     Route: 048
     Dates: end: 20120409
  5. RANITIDINE [Concomitant]
     Route: 048
     Dates: end: 20120409

REACTIONS (2)
  - HYPERGLYCAEMIA [None]
  - DIABETIC COMPLICATION [None]
